FAERS Safety Report 17014679 (Version 2)
Quarter: 2019Q4

REPORT INFORMATION
  Report Type: Spontaneous
  Country: US (occurrence: US)
  Receive Date: 20191111
  Receipt Date: 20191218
  Transmission Date: 20200122
  Serious: No
  Sender: FDA-Public Use
  Company Number: US-GILEAD-2019-0436756

PATIENT
  Age: 27 Year
  Sex: Female
  Weight: 80.73 kg

DRUGS (4)
  1. PIFELTRO [Concomitant]
     Active Substance: DORAVIRINE
     Indication: HIV INFECTION
     Dosage: UNK
     Dates: start: 20150417
  2. TRUVADA [Suspect]
     Active Substance: EMTRICITABINE\TENOFOVIR DISOPROXIL FUMARATE
     Indication: HIV INFECTION
     Dosage: 1 DOSAGE FORM
     Route: 048
     Dates: start: 20150417
  3. BIKTARVY [Suspect]
     Active Substance: BICTEGRAVIR SODIUM\EMTRICITABINE\TENOFOVIR ALAFENAMIDE FUMARATE
     Indication: HIV INFECTION
     Dosage: UNK DOSAGE FORM
     Route: 065
     Dates: start: 201905
  4. PRENATAL VITAMINS [MINERALS NOS;VITAMINS NOS] [Concomitant]
     Active Substance: MINERALS\VITAMINS
     Indication: NUTRITIONAL SUPPLEMENTATION
     Dosage: UNK
     Dates: start: 201904

REACTIONS (1)
  - Maternal exposure during pregnancy [Recovered/Resolved]
